FAERS Safety Report 21985838 (Version 2)
Quarter: 2023Q1

REPORT INFORMATION
  Report Type: Spontaneous
  Country: AT (occurrence: AT)
  Receive Date: 20230213
  Receipt Date: 20230306
  Transmission Date: 20230418
  Serious: Yes (Life-Threatening, Other)
  Sender: FDA-Public Use
  Company Number: AT-ROCHE-3234094

PATIENT
  Age: 14 Year
  Sex: Female

DRUGS (10)
  1. THALIDOMIDE [Suspect]
     Active Substance: THALIDOMIDE
     Indication: Medulloblastoma recurrent
     Route: 048
  2. CYTARABINE [Suspect]
     Active Substance: CYTARABINE
     Indication: Medulloblastoma recurrent
     Dosage: 0-3 YEARS 25 MG, 3-9 YEARS 35 MG, }9 YEARS 50 MG
     Route: 030
  3. CYTARABINE [Suspect]
     Active Substance: CYTARABINE
     Dosage: 0-3 YEARS 25 MG, 3-9 YEARS 35 MG
     Route: 030
  4. BEVACIZUMAB [Suspect]
     Active Substance: BEVACIZUMAB
     Indication: Medulloblastoma recurrent
     Dosage: 10 MILLIGRAM/KILOGRAM, BIWEEKLY (CYCLICAL)
     Route: 042
  5. CELECOXIB [Suspect]
     Active Substance: CELECOXIB
     Indication: Medulloblastoma recurrent
     Route: 048
  6. CELECOXIB [Suspect]
     Active Substance: CELECOXIB
     Route: 048
  7. FENOFIBRATE [Suspect]
     Active Substance: FENOFIBRATE
     Indication: Medulloblastoma recurrent
     Dosage: 90 MILLIGRAM/SQ. METER, QD (MAX. 200 MG)
     Route: 048
  8. CYCLOPHOSPHAMIDE [Suspect]
     Active Substance: CYCLOPHOSPHAMIDE
     Indication: Medulloblastoma recurrent
     Dosage: 2.5 MILLIGRAM/KILOGRAM MAX. 100 MG
  9. ETOPOSIDE [Suspect]
     Active Substance: ETOPOSIDE
     Indication: Medulloblastoma recurrent
     Dosage: 35-50 MG/M2 DAILY
     Route: 048
  10. ETOPOSIDE [Suspect]
     Active Substance: ETOPOSIDE
     Dosage: 0.5 MILLIGRAM, QD (LESS THAN1 YEARS 0.25 MG DAILY FOR 5 DAYS)

REACTIONS (4)
  - Acute respiratory distress syndrome [Unknown]
  - Proteinuria [Unknown]
  - Pneumonitis [Unknown]
  - Off label use [Unknown]
